FAERS Safety Report 25902928 (Version 1)
Quarter: 2025Q4

REPORT INFORMATION
  Report Type: Spontaneous
  Country: US (occurrence: None)
  Receive Date: 20251009
  Receipt Date: 20251009
  Transmission Date: 20260117
  Serious: Yes (Other)
  Sender: FDA-CTU
  Company Number: None

PATIENT
  Age: 44 Year
  Sex: Female

DRUGS (1)
  1. ESTRADIOL [Suspect]
     Active Substance: ESTRADIOL
     Dosage: ONCE A WEEK TRANSDERMAL ?
     Route: 062
     Dates: start: 20250927, end: 20250927

REACTIONS (1)
  - Rash [None]

NARRATIVE: CASE EVENT DATE: 20251006
